FAERS Safety Report 17708173 (Version 1)
Quarter: 2020Q2

REPORT INFORMATION
  Report Type: Spontaneous
  Country: US (occurrence: US)
  Receive Date: 20200425
  Receipt Date: 20200425
  Transmission Date: 20200714
  Serious: No
  Sender: FDA-Public Use
  Company Number: US-TEVA-2020-US-1226255

PATIENT
  Age: 34 Year
  Sex: Female

DRUGS (1)
  1. BUPROPION HYDROCHLORIDE. [Suspect]
     Active Substance: BUPROPION HYDROCHLORIDE
     Dosage: EXTENDED-RELEASE TABLETS ?BUPROPION XL 150 MG EVERY OTHER DAY
     Route: 065

REACTIONS (3)
  - Drug withdrawal syndrome [Unknown]
  - Product prescribing error [Unknown]
  - Nausea [Unknown]
